FAERS Safety Report 21549535 (Version 1)
Quarter: 2022Q4

REPORT INFORMATION
  Report Type: Report from Study
  Country: US (occurrence: US)
  Receive Date: 20221103
  Receipt Date: 20221103
  Transmission Date: 20230113
  Serious: Yes (Other)
  Sender: FDA-Public Use
  Company Number: US-002147023-NVSC2022US242109

PATIENT
  Sex: Male

DRUGS (1)
  1. KESIMPTA [Suspect]
     Active Substance: OFATUMUMAB
     Indication: Multiple sclerosis
     Dosage: 20 MG, QMO (ONCE A MONTH)
     Route: 058
     Dates: start: 20220908

REACTIONS (10)
  - Multiple sclerosis relapse [Unknown]
  - Coordination abnormal [Unknown]
  - Limb discomfort [Unknown]
  - Peroneal nerve palsy [Unknown]
  - Fall [Unknown]
  - Cognitive disorder [Unknown]
  - Fatigue [Unknown]
  - Optic neuritis [Unknown]
  - Balance disorder [Unknown]
  - Visual impairment [Unknown]
